FAERS Safety Report 8896138 (Version 1)
Quarter: 2012Q4

REPORT INFORMATION
  Report Type: 
  Country: US (occurrence: US)
  Receive Date: 20121108
  Receipt Date: 20121108
  Transmission Date: 20130627
  Serious: No
  Sender: FDA-Public Use
  Company Number: US-PFIZER INC-2012277799

PATIENT
  Age: 69 Year

DRUGS (1)
  1. CELECOXIB [Suspect]
     Indication: KNEE SURGERY NOS
     Dosage: 200 mg, 1x/day (one tablet)
     Route: 048

REACTIONS (2)
  - Abdominal discomfort [Unknown]
  - Drug effect incomplete [Unknown]
